FAERS Safety Report 10931773 (Version 4)
Quarter: 2016Q3

REPORT INFORMATION
  Report Type: Report from Study
  Country: AU (occurrence: AU)
  Receive Date: 20150319
  Receipt Date: 20160803
  Transmission Date: 20161109
  Serious: Yes (Hospitalization, Other)
  Sender: FDA-Public Use
  Company Number: PHHY2015AU027688

PATIENT
  Age: 82 Year
  Sex: Male

DRUGS (3)
  1. METOPROLOL. [Concomitant]
     Active Substance: METOPROLOL
     Indication: BLOOD PRESSURE ABNORMAL
     Dosage: 25 MG
     Route: 065
  2. SANDOSTATIN LAR DEPOT [Suspect]
     Active Substance: OCTREOTIDE ACETATE
     Indication: CARCINOID SYNDROME
     Dosage: 40 MG
     Route: 030
  3. WARFARIN [Concomitant]
     Active Substance: WARFARIN
     Indication: INTERNATIONAL NORMALISED RATIO ABNORMAL
     Route: 065

REACTIONS (10)
  - Blood glucose increased [Recovering/Resolving]
  - Urinary bladder haemorrhage [Unknown]
  - Infected skin ulcer [Unknown]
  - Malaise [Recovering/Resolving]
  - Impaired healing [Unknown]
  - Body temperature increased [Recovering/Resolving]
  - Urinary retention [Unknown]
  - Second primary malignancy [Unknown]
  - Skin ulcer [Unknown]
  - Skin cancer [Unknown]

NARRATIVE: CASE EVENT DATE: 20160723
